FAERS Safety Report 20616186 (Version 2)
Quarter: 2022Q1

REPORT INFORMATION
  Report Type: Spontaneous
  Country: GB (occurrence: GB)
  Receive Date: 20220321
  Receipt Date: 20220330
  Transmission Date: 20220424
  Serious: Yes (Other)
  Sender: FDA-Public Use
  Company Number: None

PATIENT
  Age: 73 Year
  Sex: Female
  Weight: 67 kg

DRUGS (14)
  1. RAMIPRIL [Suspect]
     Active Substance: RAMIPRIL
     Indication: Hypertension
     Dosage: 1 DOSAGE FORM, QD, 2.5MG + 5MG + 10MG
     Dates: start: 20191030
  2. RAMIPRIL [Suspect]
     Active Substance: RAMIPRIL
     Dosage: UNK
     Dates: start: 20220315
  3. Adcal [Concomitant]
     Indication: Ill-defined disorder
     Dosage: UNK, BID (TAKE ONE TWICE DAILY)
     Dates: start: 20190731
  4. Adcal [Concomitant]
     Dosage: 1 DOSAGE FORM, BID
     Dates: start: 20190731
  5. GABAPENTIN [Concomitant]
     Active Substance: GABAPENTIN
     Indication: Ill-defined disorder
     Dosage: UNK, TID (TAKE ONE UPTO 3 TIMES/DAY)
     Dates: start: 20220201, end: 20220303
  6. GABAPENTIN [Concomitant]
     Active Substance: GABAPENTIN
     Dosage: 1 DOSAGE FORM, TID
     Dates: start: 20220201, end: 20220303
  7. HYDROCORTISONE [Concomitant]
     Active Substance: HYDROCORTISONE
     Indication: Ill-defined disorder
     Dosage: APPLY SPARINGLY TO AFFECTED AREAS TWICE DAILY F
     Dates: start: 20210209
  8. HYDROCORTISONE [Concomitant]
     Active Substance: HYDROCORTISONE
     Dosage: 1 DOSAGE FORM, BID, APPLY SPARINGLY TO AFFECTED AREAS
     Dates: start: 20210209
  9. LERCANIDIPINE HYDROCHLORIDE [Concomitant]
     Active Substance: LERCANIDIPINE HYDROCHLORIDE
     Indication: Ill-defined disorder
     Dosage: UNK, QD (TAKE ONE DAILY)
     Dates: start: 20220311
  10. LERCANIDIPINE HYDROCHLORIDE [Concomitant]
     Active Substance: LERCANIDIPINE HYDROCHLORIDE
     Dosage: 1 DOSAGE FORM, QD
     Dates: start: 20220311
  11. OMEPRAZOLE [Concomitant]
     Active Substance: OMEPRAZOLE
     Indication: Ill-defined disorder
     Dosage: TAKE ONE OR TWO DAILY
     Dates: start: 20190731
  12. RAMIPRIL [Concomitant]
     Active Substance: RAMIPRIL
     Indication: Ill-defined disorder
     Dosage: UNK, QD (TAKE ONE DAILY)
     Dates: start: 20191030, end: 20220311
  13. TOPIRAMATE [Concomitant]
     Active Substance: TOPIRAMATE
     Indication: Ill-defined disorder
     Dosage: UNK, BID (TAKE ONE TWICE DAILY)
     Dates: start: 20190731
  14. TOPIRAMATE [Concomitant]
     Active Substance: TOPIRAMATE
     Indication: Hypertension
     Dosage: 1 DOSAGE FORM, BID
     Dates: start: 20190731

REACTIONS (1)
  - Lichen planus [Recovering/Resolving]
